FAERS Safety Report 17009674 (Version 2)
Quarter: 2019Q4

REPORT INFORMATION
  Report Type: Spontaneous
  Country: US (occurrence: US)
  Receive Date: 20191108
  Receipt Date: 20191118
  Transmission Date: 20200122
  Serious: Yes (Life-Threatening, Other)
  Sender: FDA-Public Use
  Company Number: US-PFIZER INC-2019475422

PATIENT
  Age: 23 Year
  Sex: Male

DRUGS (2)
  1. VANCOMYCIN HCL [Suspect]
     Active Substance: VANCOMYCIN HYDROCHLORIDE
     Dosage: 250 MG, 2X/DAY
     Route: 055
  2. VANCOMYCIN HCL [Suspect]
     Active Substance: VANCOMYCIN HYDROCHLORIDE
     Indication: STAPHYLOCOCCAL INFECTION
     Dosage: INITIATED AT 0.025 MG, INCREASING EVERY 15 MINUTES
     Route: 055

REACTIONS (5)
  - Dyspnoea [Unknown]
  - Pruritus [Unknown]
  - Incorrect route of product administration [Unknown]
  - Angioedema [Unknown]
  - Type I hypersensitivity [Unknown]
